FAERS Safety Report 5161946-2 (Version None)
Quarter: 2006Q4

REPORT INFORMATION
  Report Type: 
  Country: None (occurrence: None)
  Receive Date: 20061130
  Receipt Date: 20061031
  Transmission Date: 20070319
  Serious: No
  Sender: FDA-Public Use
  Company Number: US-GLAXOSMITHKLINE-A0625606A

PATIENT
  Age: 62 Year
  Sex: Female

DRUGS (8)
  1. WELLBUTRIN XL [Suspect]
     Indication: DEPRESSION
     Dosage: 300MG PER DAY
     Route: 048
     Dates: start: 20010101
  2. ALBUTEROL [Concomitant]
  3. PAXIL CR [Concomitant]
  4. NEBULIZER [Concomitant]
  5. PREDNISONE TAB [Concomitant]
  6. IBUPROFEN [Concomitant]
  7. ADVAIR DISKUS 100/50 [Concomitant]
  8. VITAMINS [Concomitant]

REACTIONS (3)
  - DEPRESSION [None]
  - DYSPNOEA [None]
  - OXYGEN SATURATION DECREASED [None]
